FAERS Safety Report 5839480-3 (Version None)
Quarter: 2008Q3

REPORT INFORMATION
  Report Type: 
  Country: None (occurrence: None)
  Receive Date: 20080807
  Receipt Date: 20080729
  Transmission Date: 20090109
  Serious: Yes (Other)
  Sender: FDA-Public Use
  Company Number: GXKR2008TH07111

PATIENT
  Age: 55 Year
  Sex: Female

DRUGS (3)
  1. CYCLOSPORINE [Suspect]
     Indication: IMMUNOSUPPRESSANT DRUG THERAPY
  2. MYCOPHENOLATE MOFETIL [Concomitant]
  3. PREDNISONE [Concomitant]

REACTIONS (7)
  - DYSARTHRIA [None]
  - IMMUNOSUPPRESSANT DRUG LEVEL DECREASED [None]
  - MENTAL IMPAIRMENT [None]
  - MYOCLONUS [None]
  - PARKINSONISM [None]
  - STUPOR [None]
  - TORTICOLLIS [None]
